FAERS Safety Report 11780719 (Version 1)
Quarter: 2015Q4

REPORT INFORMATION
  Report Type: Report from Study
  Country: GB (occurrence: GB)
  Receive Date: 20151126
  Receipt Date: 20151126
  Transmission Date: 20160305
  Serious: Yes (Death, Hospitalization)
  Sender: FDA-Public Use
  Company Number: GB-ROCHE-1665893

PATIENT
  Sex: Female

DRUGS (27)
  1. FOLIC ACID. [Concomitant]
     Active Substance: FOLIC ACID
     Dosage: EXCEPT DAY OF METHOTREXATE
     Route: 048
  2. BETAHISTINE [Concomitant]
     Active Substance: BETAHISTINE
     Route: 048
  3. METHOTREXATE [Concomitant]
     Active Substance: METHOTREXATE
     Route: 048
  4. BUPRENORPHINE. [Concomitant]
     Active Substance: BUPRENORPHINE
     Indication: ANALGESIC THERAPY
     Dosage: (TRANSTEC) 52.5 MICROGRAMS RELEASED PER HOUR DRESSING
     Route: 061
  5. LEVOTHYROXINE. [Concomitant]
     Active Substance: LEVOTHYROXINE
     Route: 048
  6. SODIUM HYALURONATE [Concomitant]
     Active Substance: HYALURONATE SODIUM
     Dosage: RIGHT EYE
     Route: 061
  7. DEXAMETHASONE. [Concomitant]
     Active Substance: DEXAMETHASONE
     Dosage: 0.1 % MINIMS LEFT EYE
     Route: 061
  8. PREDNISOLONE. [Concomitant]
     Active Substance: PREDNISOLONE
     Route: 048
  9. PREDNISOLONE. [Concomitant]
     Active Substance: PREDNISOLONE
     Route: 048
  10. VALSARTAN. [Concomitant]
     Active Substance: VALSARTAN
     Route: 048
  11. ACETYLCYSTEINE. [Concomitant]
     Active Substance: ACETYLCYSTEINE
     Dosage: ONE DROP TWICE A DAY RIGHT EYE AND 1 DROP FOUR TIMES A DAY LEFT EYE
     Route: 061
  12. GLYCERYL TRINITRATE [Concomitant]
     Active Substance: NITROGLYCERIN
     Route: 060
  13. AMLODIPINE [Concomitant]
     Active Substance: AMLODIPINE BESYLATE
     Route: 048
  14. ASPIRINE [Concomitant]
     Active Substance: ASPIRIN
     Route: 048
  15. CALCEOS [Concomitant]
     Active Substance: CALCIUM CARBONATE\CHOLECALCIFEROL
     Route: 048
  16. SIMVASTATIN. [Concomitant]
     Active Substance: SIMVASTATIN
     Route: 048
  17. ILOPROST [Concomitant]
     Active Substance: ILOPROST
     Route: 065
  18. PARACETAMOL [Concomitant]
     Active Substance: ACETAMINOPHEN
     Indication: ANALGESIC THERAPY
     Route: 048
  19. COMPRESSION BANDAGE [Concomitant]
     Route: 061
  20. ALENDRONIC ACID [Concomitant]
     Active Substance: ALENDRONIC ACID
     Indication: CHRONIC KIDNEY DISEASE
     Route: 065
  21. LEVOTHYROXINE. [Concomitant]
     Active Substance: LEVOTHYROXINE
     Route: 048
  22. OMEPRAZOLE. [Concomitant]
     Active Substance: OMEPRAZOLE
     Route: 048
  23. RITUXIMAB [Suspect]
     Active Substance: RITUXIMAB
     Indication: RHEUMATOID ARTHRITIS
     Dosage: 10/OCT/2013 DATE OF LAST DOSE PRIOR TO SAE
     Route: 065
     Dates: start: 20080215
  24. GABAPENTIN. [Concomitant]
     Active Substance: GABAPENTIN
     Route: 048
  25. CHLORAMPHENICOL [Concomitant]
     Active Substance: CHLORAMPHENICOL
     Route: 065
  26. BISOPROLOL [Concomitant]
     Active Substance: BISOPROLOL
     Route: 048
  27. CICLOSPORIN [Concomitant]
     Active Substance: CYCLOSPORINE
     Dosage: 1 DROP
     Route: 061

REACTIONS (2)
  - Death [Fatal]
  - Cellulitis [Unknown]
